FAERS Safety Report 5581007-8 (Version None)
Quarter: 2007Q4

REPORT INFORMATION
  Report Type: 
  Country: None (occurrence: None)
  Receive Date: 20071228
  Receipt Date: 20071218
  Transmission Date: 20080405
  Serious: Yes (Death, Hospitalization)
  Sender: FDA-Public Use
  Company Number: PAR_01823_2007

PATIENT
  Sex: Female

DRUGS (14)
  1. LISINOPRIL [Suspect]
     Indication: BLOOD PRESSURE
     Dosage: 10 MG QD; ORAL
     Route: 048
     Dates: start: 20030101
  2. CLOPIDOGREL BISULFATE [Suspect]
     Indication: MYOCARDIAL INFARCTION
     Dosage: 75 MG QD; ORAL
     Route: 048
     Dates: start: 20030901, end: 20031001
  3. CLOPIDOGREL BISULFATE [Suspect]
     Indication: PROPHYLAXIS
     Dosage: 75 MG QD; ORAL
     Route: 048
     Dates: start: 20030901, end: 20031001
  4. CLOPIDOGREL BISULFATE [Suspect]
     Indication: STENT PLACEMENT
     Dosage: 75 MG QD; ORAL
     Route: 048
     Dates: start: 20030901, end: 20031001
  5. CYCLOSPORINE [Suspect]
     Indication: TRANSPLANT REJECTION
     Dosage: 65 MG BID, ORAL
     Route: 048
     Dates: start: 19900101, end: 20031001
  6. LIPITOR [Suspect]
     Indication: DYSLIPIDAEMIA
     Dosage: 80 MG QD, ORAL, (GRADUALLY TITRATED TO 80 MG DAILY OVER 15 MONTHS, ORAL
     Route: 048
     Dates: start: 19970101, end: 20031001
  7. LIPITOR [Suspect]
     Indication: MYOCARDIAL INFARCTION
     Dosage: 80 MG QD, ORAL, (GRADUALLY TITRATED TO 80 MG DAILY OVER 15 MONTHS, ORAL
     Route: 048
     Dates: start: 19970101, end: 20031001
  8. LIPITOR [Suspect]
     Indication: DYSLIPIDAEMIA
     Dosage: 80 MG QD, ORAL, (GRADUALLY TITRATED TO 80 MG DAILY OVER 15 MONTHS, ORAL
     Route: 048
     Dates: start: 20030101
  9. LIPITOR [Suspect]
     Indication: MYOCARDIAL INFARCTION
     Dosage: 80 MG QD, ORAL, (GRADUALLY TITRATED TO 80 MG DAILY OVER 15 MONTHS, ORAL
     Route: 048
     Dates: start: 20030101
  10. ALLOPURINOL [Suspect]
     Indication: PROPHYLAXIS
     Dosage: 300 MG QD,
     Dates: start: 19900301
  11. PREDNISONE TAB [Suspect]
     Indication: CORONARY ARTERIAL STENT INSERTION
     Dosage: 2.5 MG QD,
     Dates: start: 20030101
  12. AZATHIOPRINE [Suspect]
     Indication: HEART TRANSPLANT
     Dosage: 25 MG QOD, ORAL
     Route: 048
     Dates: start: 20030101
  13. AZATHIOPRINE [Suspect]
     Indication: IMMUNOSUPPRESSANT DRUG THERAPY
     Dosage: 25 MG QOD, ORAL
     Route: 048
     Dates: start: 20030101
  14. ACETYLSALICYLIC ACID SRT [Suspect]
     Indication: PROPHYLAXIS
     Dosage: DF

REACTIONS (9)
  - BLOOD TRIGLYCERIDES INCREASED [None]
  - CORONARY ARTERY DILATATION [None]
  - CORONARY ARTERY DISEASE [None]
  - CORONARY ARTERY OCCLUSION [None]
  - HYPERCHOLESTEROLAEMIA [None]
  - IMMUNOSUPPRESSANT DRUG LEVEL INCREASED [None]
  - LOW DENSITY LIPOPROTEIN INCREASED [None]
  - MYOCARDIAL ISCHAEMIA [None]
  - RHABDOMYOLYSIS [None]
